FAERS Safety Report 4861210-2 (Version None)
Quarter: 2005Q4

REPORT INFORMATION
  Report Type: 
  Country: None (occurrence: None)
  Receive Date: 20051220
  Receipt Date: 20031105
  Transmission Date: 20060501
  Serious: Yes (Life-Threatening, Hospitalization)
  Sender: FDA-Public Use
  Company Number: CA-BRISTOL-MYERS SQUIBB COMPANY-12428074

PATIENT
  Age: 57 Year
  Sex: Male

DRUGS (15)
  1. TEQUIN [Suspect]
     Indication: PNEUMONIA
     Route: 048
     Dates: start: 20030921, end: 20030922
  2. METFORMIN BIPHASIC TABS 500 MG [Interacting]
  3. DIAMICRON [Interacting]
  4. AVANDIA [Interacting]
  5. ASPIRIN [Concomitant]
  6. COLACE [Concomitant]
  7. DITROPAN [Concomitant]
  8. ELAVIL [Concomitant]
  9. FENOFIBRATE [Concomitant]
  10. FUROSEMIDE [Concomitant]
  11. IMOVANE [Concomitant]
  12. LIORESAL [Concomitant]
  13. VENTOLIN [Concomitant]
     Route: 055
  14. ASCORBIC ACID [Concomitant]
  15. ZANAFLEX [Concomitant]

REACTIONS (3)
  - COMA [None]
  - DRUG INTERACTION [None]
  - HYPOGLYCAEMIA [None]
